FAERS Safety Report 21590378 (Version 1)
Quarter: 2022Q4

REPORT INFORMATION
  Report Type: Spontaneous
  Country: US (occurrence: US)
  Receive Date: 20221114
  Receipt Date: 20221114
  Transmission Date: 20230113
  Serious: Yes (Other)
  Sender: FDA-Public Use
  Company Number: US-CHEPLA-2022010147

PATIENT
  Age: 15 Month
  Sex: Female

DRUGS (10)
  1. GANCICLOVIR [Suspect]
     Active Substance: GANCICLOVIR
     Indication: Pneumocystis jirovecii pneumonia
  2. FLUCONAZOLE [Concomitant]
     Active Substance: FLUCONAZOLE
     Indication: Pneumocystis jirovecii pneumonia
  3. SULFAMETHOXAZOLE\TRIMETHOPRIM [Concomitant]
     Active Substance: SULFAMETHOXAZOLE\TRIMETHOPRIM
     Indication: Pneumocystis jirovecii pneumonia
  4. METHYLPREDNISOLONE [Concomitant]
     Active Substance: METHYLPREDNISOLONE
     Dosage: 10 MG/KG ? 3 DAYS
  5. TACROLIMUS [Concomitant]
     Active Substance: TACROLIMUS
     Dosage: (12? 18 NG/ML FOR THE FIRST 8 WEEKS THEN 10? 15 NG/ML WEEKS 9? 16 AND 6? 10 NG/ML THEREAFTER)
  6. PREDNISOLONE [Concomitant]
     Active Substance: PREDNISOLONE
  7. PENICILLIN [Concomitant]
     Active Substance: PENICILLIN
     Indication: Pneumocystis jirovecii pneumonia
  8. RITUXIMAB [Concomitant]
     Active Substance: RITUXIMAB
  9. CYCLOPHOSPHAMIDE [Concomitant]
     Active Substance: CYCLOPHOSPHAMIDE
  10. THYMOCYTE IMMUNE GLOBULIN NOS [Concomitant]
     Active Substance: THYMOCYTE IMMUNE GLOBULIN NOS

REACTIONS (2)
  - Graft versus host disease [Unknown]
  - Product use in unapproved indication [Unknown]
